FAERS Safety Report 7933153-9 (Version None)
Quarter: 2011Q4

REPORT INFORMATION
  Report Type: 
  Country: None (occurrence: None)
  Receive Date: 20111122
  Receipt Date: 20111107
  Transmission Date: 20120403
  Serious: Yes (Hospitalization, Other)
  Sender: FDA-Public Use
  Company Number: PHEH2011US06547

PATIENT
  Sex: Male
  Weight: 68.5 kg

DRUGS (12)
  1. ASPIRIN [Concomitant]
     Dosage: 81 MG, QD
  2. SUTENT [Suspect]
     Dosage: 50 MG, QD
  3. GLEEVEC [Suspect]
     Dosage: 800 MG, QD
     Route: 048
  4. MULTI-VITAMINS [Concomitant]
     Dosage: UNK
  5. GLEEVEC [Suspect]
     Indication: GASTROINTESTINAL STROMAL TUMOUR
     Dosage: 400 MG, QD
     Route: 048
     Dates: start: 20030101
  6. FERROUS SULFATE TAB [Suspect]
     Dosage: 325 MG, BID
     Route: 048
     Dates: start: 20110725, end: 20110727
  7. IRON [Concomitant]
     Dosage: UNK , QOD
  8. LISINOPRIL [Concomitant]
     Dosage: 20/5 MG, QD
     Route: 065
  9. ADVAIR DISKUS 100/50 [Concomitant]
     Dosage: UNK  BID
  10. IRON [Concomitant]
     Dosage: UNK
  11. VITAMIN B-12 [Concomitant]
     Dosage: 1000 UG, MONTHLY
  12. METOPROLOL TARTRATE [Concomitant]
     Dosage: 50 MG, QD

REACTIONS (16)
  - LUNG INFILTRATION [None]
  - VOMITING [None]
  - CARDIAC FAILURE CONGESTIVE [None]
  - SQUAMOUS CELL CARCINOMA OF SKIN [None]
  - GASTROINTESTINAL STROMAL TUMOUR [None]
  - ABDOMINAL TENDERNESS [None]
  - BLOOD PRESSURE ABNORMAL [None]
  - RHONCHI [None]
  - NAUSEA [None]
  - DIARRHOEA [None]
  - SPUTUM DISCOLOURED [None]
  - FATIGUE [None]
  - NEOPLASM MALIGNANT [None]
  - NODULE [None]
  - ABDOMINAL PAIN [None]
  - ABDOMINAL DISCOMFORT [None]
